FAERS Safety Report 10056152 (Version 1)
Quarter: 2014Q2

REPORT INFORMATION
  Report Type: Spontaneous
  Country: US (occurrence: US)
  Receive Date: 20140403
  Receipt Date: 20140403
  Transmission Date: 20141212
  Serious: No
  Sender: FDA-Public Use
  Company Number: US-PFIZER INC-2014093903

PATIENT
  Sex: Female

DRUGS (2)
  1. CELEBREX [Suspect]
     Indication: BACK PAIN
     Dosage: 200 MG, 1X/DAY
     Dates: start: 20140320
  2. PRILOSEC [Concomitant]
     Indication: OESOPHAGEAL ULCER
     Dosage: UNK, 2X/DAY

REACTIONS (2)
  - Dizziness [Unknown]
  - Palpitations [Unknown]
